FAERS Safety Report 10017756 (Version 2)
Quarter: 2014Q3

REPORT INFORMATION
  Report Type: Report from Study
  Country: US (occurrence: US)
  Receive Date: 20140318
  Receipt Date: 20140819
  Transmission Date: 20150326
  Serious: No
  Sender: FDA-Public Use
  Company Number: US-ALEXION-A201400810

PATIENT

DRUGS (3)
  1. LASIX [Concomitant]
     Active Substance: FUROSEMIDE
     Dosage: 120 MG, QD
     Dates: start: 20120603
  2. CIPROFLOXACIN. [Concomitant]
     Active Substance: CIPROFLOXACIN
     Dosage: UNK
     Dates: start: 20120523
  3. SOLIRIS [Suspect]
     Active Substance: ECULIZUMAB
     Indication: HAEMOLYTIC URAEMIC SYNDROME
     Dosage: 1200, Q2W
     Route: 042
     Dates: start: 20120519

REACTIONS (12)
  - Haematochezia [Unknown]
  - Fall [Unknown]
  - Haemoglobin decreased [Unknown]
  - Fatigue [Unknown]
  - Pain [Unknown]
  - Dizziness [Unknown]
  - Heart rate decreased [Recovering/Resolving]
  - Feeling abnormal [Unknown]
  - Dizziness postural [Unknown]
  - Blood pressure decreased [Recovering/Resolving]
  - Eating disorder [Unknown]
  - Weight decreased [Unknown]

NARRATIVE: CASE EVENT DATE: 201312
